FAERS Safety Report 5869724-3 (Version None)
Quarter: 2008Q3

REPORT INFORMATION
  Report Type: 
  Country: None (occurrence: None)
  Receive Date: 20080904
  Receipt Date: 20060420
  Transmission Date: 20090109
  Serious: Yes (Death, Hospitalization)
  Sender: FDA-Public Use
  Company Number: IE-NOVOPROD-247562

PATIENT
  Sex: Male
  Weight: 85 kg

DRUGS (2)
  1. LEVEMIR [Suspect]
     Indication: DIABETES MELLITUS
     Dosage: 38 IU, QD
     Route: 058
     Dates: start: 20050629, end: 20050706
  2. LEVEMIR [Suspect]
     Dates: start: 20050715, end: 20050722

REACTIONS (1)
  - CARDIAC ARREST [None]
